FAERS Safety Report 20288654 (Version 1)
Quarter: 2022Q1

REPORT INFORMATION
  Report Type: Report from Study
  Country: FR (occurrence: FR)
  Receive Date: 20220104
  Receipt Date: 20220104
  Transmission Date: 20220424
  Serious: Yes (Death, Hospitalization)
  Sender: FDA-Public Use
  Company Number: FR-ABBVIE-22K-056-4218924-00

PATIENT
  Age: 67 Year
  Sex: Female
  Weight: 57 kg

DRUGS (5)
  1. HUMIRA [Suspect]
     Active Substance: ADALIMUMAB
     Indication: Enterocolitis haemorrhagic
     Route: 058
     Dates: start: 20180626, end: 20180626
  2. HUMIRA [Suspect]
     Active Substance: ADALIMUMAB
     Route: 058
     Dates: start: 20210702, end: 20210702
  3. HUMIRA [Suspect]
     Active Substance: ADALIMUMAB
     Route: 058
  4. VENLAFAXINE [Concomitant]
     Active Substance: VENLAFAXINE HYDROCHLORIDE
     Indication: Depression
     Route: 048
     Dates: start: 2018
  5. ALPRAZOLAM [Concomitant]
     Active Substance: ALPRAZOLAM
     Indication: Depression
     Route: 048
     Dates: start: 2018

REACTIONS (2)
  - Acute kidney injury [Fatal]
  - Acute kidney injury [Recovered/Resolved]

NARRATIVE: CASE EVENT DATE: 20180701
